FAERS Safety Report 4894888-8 (Version None)
Quarter: 2006Q1

REPORT INFORMATION
  Report Type: 
  Country: None (occurrence: None)
  Receive Date: 20060130
  Receipt Date: 20050126
  Transmission Date: 20060701
  Serious: No
  Sender: FDA-Public Use
  Company Number: US-BRISTOL-MYERS SQUIBB COMPANY-12838603

PATIENT
  Age: 49 Year
  Sex: Male
  Weight: 68 kg

DRUGS (5)
  1. GLUCOPHAGE [Suspect]
     Indication: DIABETES MELLITUS
     Route: 048
     Dates: start: 20021101
  2. GLYBURIDE [Concomitant]
  3. TYLENOL W/ CODEINE [Concomitant]
  4. TAGAMET [Concomitant]
  5. CLARITIN [Concomitant]

REACTIONS (3)
  - FATIGUE [None]
  - MYALGIA [None]
  - RESPIRATORY TRACT CONGESTION [None]
